FAERS Safety Report 4494575-4 (Version None)
Quarter: 2004Q4

REPORT INFORMATION
  Report Type: 
  Country: None (occurrence: None)
  Receive Date: 20041105
  Receipt Date: 20041026
  Transmission Date: 20050328
  Serious: Yes (Hospitalization, Disabling)
  Sender: FDA-Public Use
  Company Number: US-MERCK-0410USA03891

PATIENT
  Age: 45 Year
  Sex: Female

DRUGS (2)
  1. VIOXX [Suspect]
     Indication: ARTHRITIS
     Route: 048
     Dates: start: 19950101, end: 19960101
  2. VIOXX [Suspect]
     Indication: PAIN
     Route: 048
     Dates: start: 19950101, end: 19960101

REACTIONS (4)
  - HAEMATEMESIS [None]
  - MENORRHAGIA [None]
  - POLYMENORRHOEA [None]
  - STOMACH DISCOMFORT [None]
